FAERS Safety Report 15266977 (Version 1)
Quarter: 2018Q3

REPORT INFORMATION
  Report Type: Report from Study
  Country: US (occurrence: US)
  Receive Date: 20180810
  Receipt Date: 20180810
  Transmission Date: 20181010
  Serious: Yes (Other)
  Sender: FDA-Public Use
  Company Number: PHEH2018US032265

PATIENT
  Sex: Male

DRUGS (1)
  1. GLEEVEC [Suspect]
     Active Substance: IMATINIB MESYLATE
     Indication: EOSINOPHILIC GRANULOMATOSIS WITH POLYANGIITIS
     Dosage: UNK
     Route: 065

REACTIONS (5)
  - Eosinophilic granulomatosis with polyangiitis [Unknown]
  - Haemophilia [Unknown]
  - Disease recurrence [Unknown]
  - Product use in unapproved indication [Unknown]
  - General physical health deterioration [Unknown]
